FAERS Safety Report 6740704-9 (Version None)
Quarter: 2010Q2

REPORT INFORMATION
  Report Type: 
  Country: None (occurrence: None)
  Receive Date: 20100521
  Receipt Date: 20100507
  Transmission Date: 20101027
  Serious: Yes (Life-Threatening)
  Sender: FDA-Public Use
  Company Number: JP-1181659

PATIENT
  Age: 65 Year
  Sex: Male

DRUGS (3)
  1. TRAVATAN Z [Suspect]
     Indication: OPEN ANGLE GLAUCOMA
     Dosage: 1 GTT QD OU
     Route: 047
     Dates: start: 20091128, end: 20100203
  2. DETANTOL (BUNAZOSIN HYDROCHLORIDE) [Concomitant]
  3. HYPADIL (NIPRADOLOL) [Concomitant]

REACTIONS (3)
  - BLOOD PRESSURE INCREASED [None]
  - CAROTID ARTERY STENOSIS [None]
  - HYPOAESTHESIA [None]
